FAERS Safety Report 18286129 (Version 1)
Quarter: 2020Q3

REPORT INFORMATION
  Report Type: Spontaneous
  Country: US (occurrence: US)
  Receive Date: 20200919
  Receipt Date: 20200919
  Transmission Date: 20201103
  Serious: Yes (Other)
  Sender: FDA-Public Use
  Company Number: US-TEVA-2020-US-1828697

PATIENT
  Sex: Male

DRUGS (6)
  1. TRAMADOL. [Suspect]
     Active Substance: TRAMADOL
     Route: 065
     Dates: start: 2015
  2. HYDROCODONE [Suspect]
     Active Substance: HYDROCODONE
     Route: 065
     Dates: start: 2015
  3. OXYCONTIN [Suspect]
     Active Substance: OXYCODONE HYDROCHLORIDE
     Route: 065
     Dates: start: 2015
  4. MORPHINE [Suspect]
     Active Substance: MORPHINE
     Route: 065
     Dates: start: 2015
  5. PERCOCET [Suspect]
     Active Substance: ACETAMINOPHEN\OXYCODONE HYDROCHLORIDE
     Route: 065
     Dates: start: 2015
  6. OXYCODONE [Suspect]
     Active Substance: OXYCODONE
     Route: 065
     Dates: start: 2015

REACTIONS (3)
  - Substance use disorder [Unknown]
  - Overdose [Unknown]
  - Dependence [Unknown]
